FAERS Safety Report 18499116 (Version 1)
Quarter: 2020Q4

REPORT INFORMATION
  Report Type: Other
  Country: US (occurrence: US)
  Receive Date: 20201112
  Receipt Date: 20201112
  Transmission Date: 20210114
  Serious: Yes (Other)
  Sender: FDA-Public Use
  Company Number: US-SERVIER-S20011041

PATIENT

DRUGS (4)
  1. TN UNSPECIFIED [PREDNISONE] [Suspect]
     Active Substance: PREDNISONE
     Indication: NON-HODGKIN^S LYMPHOMA
     Dosage: A CUMULATIVE DOSE OF 1120 MG/M2 OVER 28 DAYS
     Route: 065
  2. ONCASPAR [Suspect]
     Active Substance: PEGASPARGASE
     Indication: NON-HODGKIN^S LYMPHOMA
     Dosage: 2500 UNITS/M2 EVERY 2 WEEKS ? 3 DOSES DURING INDUCTION
     Route: 042
  3. ONCASPAR [Suspect]
     Active Substance: PEGASPARGASE
     Dosage: 2500 UNITS/M2 EVERY 2 WEEKS ? 12 DOSES DURING CONTINUATION
     Route: 042
  4. TN UNSPECIFIED [DEXAMETHASONE] [Suspect]
     Active Substance: DEXAMETHASONE
     Indication: NON-HODGKIN^S LYMPHOMA
     Dosage: A CUMMULATIVE DOSE OF 1020 MG/M2 OVER 98 WEEKS
     Route: 065

REACTIONS (1)
  - Osteonecrosis [Unknown]

NARRATIVE: CASE EVENT DATE: 2020
